FAERS Safety Report 9737080 (Version 1)
Quarter: 2013Q4

REPORT INFORMATION
  Report Type: Spontaneous
  Country: JP (occurrence: JP)
  Receive Date: 20131206
  Receipt Date: 20131206
  Transmission Date: 20140711
  Serious: Yes (Other)
  Sender: FDA-Public Use
  Company Number: JP-ABBVIE-13P-087-1176189-00

PATIENT
  Age: 5 Year
  Sex: Female
  Weight: 19.3 kg

DRUGS (1)
  1. SEVOFLURANE (SEVOFRANE) [Suspect]
     Indication: INDUCTION OF ANAESTHESIA
     Dates: start: 20120315, end: 20120315

REACTIONS (2)
  - Electrocardiogram ST segment depression [Unknown]
  - Dyskinesia [Unknown]
